FAERS Safety Report 5022027-1 (Version None)
Quarter: 2006Q2

REPORT INFORMATION
  Report Type: 
  Country: None (occurrence: None)
  Receive Date: 20060605
  Receipt Date: 20060525
  Transmission Date: 20061013
  Serious: Yes (Hospitalization)
  Sender: FDA-Public Use
  Company Number: 2006068094

PATIENT
  Age: 60 Year
  Sex: Female
  Weight: 46.7205 kg

DRUGS (10)
  1. NICOTROL [Suspect]
     Indication: SMOKING CESSATION THERAPY
     Dosage: 2-3 CARTRIDGES DAILY, INHALATION
     Route: 055
     Dates: start: 20051215
  2. ACETYLSALICYLIC ACID SRT [Concomitant]
  3. ALPRAZOLAM [Concomitant]
  4. OXYCODONE HYDROCHLORIDE AND ACETAMINOPHEN [Concomitant]
  5. TIZANIDINE HCL [Concomitant]
  6. ALENDRONATE SODIUM [Concomitant]
  7. FOLIC ACID [Concomitant]
  8. HYDROCHLOROTHIAZIDE/OLMESARTAN [Concomitant]
  9. PHRENILIN (BUTALBITAL, PARACETAMOL) [Concomitant]
  10. PRAVASTATIN SODIUM [Concomitant]

REACTIONS (4)
  - BLOOD SODIUM DECREASED [None]
  - DIZZINESS [None]
  - MALAISE [None]
  - STRESS [None]
